FAERS Safety Report 8955042 (Version 2)
Quarter: 2013Q2

REPORT INFORMATION
  Report Type: Spontaneous
  Country: BR (occurrence: BR)
  Receive Date: 20121210
  Receipt Date: 20130520
  Transmission Date: 20140414
  Serious: Yes (Other)
  Sender: FDA-Public Use
  Company Number: BR-JNJFOC-20121203421

PATIENT
  Age: 47 Year
  Sex: Female
  Weight: 75 kg

DRUGS (10)
  1. XARELTO [Suspect]
     Indication: EMBOLISM VENOUS
     Route: 048
     Dates: start: 20121009, end: 20121125
  2. XARELTO [Suspect]
     Indication: EMBOLISM VENOUS
     Route: 048
     Dates: start: 20121126, end: 201212
  3. XARELTO [Suspect]
     Indication: THROMBOSIS
     Route: 048
     Dates: start: 20121126, end: 201212
  4. XARELTO [Suspect]
     Indication: THROMBOSIS
     Route: 048
     Dates: start: 20121009, end: 20121125
  5. SLEEP AID [Concomitant]
     Indication: SLEEP DISORDER THERAPY
     Route: 065
  6. RANITIDINE [Concomitant]
     Indication: GASTRIC DISORDER
     Route: 048
     Dates: start: 2011
  7. LORAZEPAM [Concomitant]
     Indication: RELAXATION THERAPY
     Route: 048
  8. SINVASTATINA MEPHA [Concomitant]
     Indication: BLOOD CHOLESTEROL INCREASED
     Route: 048
     Dates: start: 2011
  9. OMEPRAZOLE [Concomitant]
     Indication: ABDOMINAL PAIN UPPER
     Route: 048
  10. LYRICA [Concomitant]
     Indication: SPINAL CORD NEOPLASM
     Route: 065

REACTIONS (7)
  - Deep vein thrombosis [Not Recovered/Not Resolved]
  - Eye haemorrhage [Recovered/Resolved]
  - Drug ineffective [Unknown]
  - Cerumen impaction [Not Recovered/Not Resolved]
  - Sensation of heaviness [Not Recovered/Not Resolved]
  - Pruritus [Recovering/Resolving]
  - Local swelling [Not Recovered/Not Resolved]
